FAERS Safety Report 19585674 (Version 4)
Quarter: 2022Q2

REPORT INFORMATION
  Report Type: Spontaneous
  Country: ES (occurrence: ES)
  Receive Date: 20210720
  Receipt Date: 20220602
  Transmission Date: 20220720
  Serious: Yes (Other)
  Sender: FDA-Public Use
  Company Number: ES-ALXN-A202108084

PATIENT
  Age: 7 Year
  Sex: Male

DRUGS (2)
  1. STRENSIQ [Suspect]
     Active Substance: ASFOTASE ALFA
     Indication: Hypophosphatasia
     Dosage: UNK, TIW
     Route: 065
     Dates: start: 20131127
  2. UNSPECIFIED INGREDIENT [Concomitant]
     Active Substance: UNSPECIFIED INGREDIENT
     Indication: Product used for unknown indication
     Dosage: ON DEMANAD (NOT DAILY)
     Route: 065

REACTIONS (7)
  - Hypophosphatasia [Unknown]
  - Condition aggravated [Unknown]
  - Vitamin B6 increased [Not Recovered/Not Resolved]
  - Musculoskeletal pain [Unknown]
  - Locomotive syndrome [Unknown]
  - Neutralising antibodies positive [Not Recovered/Not Resolved]
  - Drug specific antibody present [Unknown]

NARRATIVE: CASE EVENT DATE: 20170323
